FAERS Safety Report 5286947-5 (Version None)
Quarter: 2007Q1

REPORT INFORMATION
  Report Type: 
  Country: None (occurrence: None)
  Receive Date: 20070329
  Receipt Date: 20070316
  Transmission Date: 20070707
  Serious: Yes (Life-Threatening)
  Sender: FDA-Public Use
  Company Number: 2007US000545

PATIENT
  Age: 51 Year
  Sex: Male

DRUGS (1)
  1. AMBISOME [Suspect]
     Indication: ASPERGILLOSIS
     Dosage: 250 MG, TOTAL DOSE
     Dates: start: 20070223, end: 20070223

REACTIONS (5)
  - ANAPHYLACTIC SHOCK [None]
  - ANXIETY [None]
  - INFUSION RELATED REACTION [None]
  - PAIN [None]
  - PRESYNCOPE [None]
